FAERS Safety Report 5614027-5 (Version None)
Quarter: 2008Q1

REPORT INFORMATION
  Report Type: 
  Country: None (occurrence: None)
  Receive Date: 20080130
  Receipt Date: 20080115
  Transmission Date: 20080703
  Serious: Yes (Hospitalization)
  Sender: FDA-Public Use
  Company Number: 2007S1009855

PATIENT
  Age: 58 Year
  Sex: Male

DRUGS (3)
  1. VERAPAMIL HYDROCHLORIDE [Suspect]
     Indication: HEART RATE IRREGULAR
     Dosage: 240 MG;X1
  2. DIGOXIN [Suspect]
     Indication: ATRIAL FIBRILLATION
  3. WARFARIN SODIUM [Concomitant]

REACTIONS (22)
  - ATRIAL FIBRILLATION [None]
  - BLOOD CREATININE INCREASED [None]
  - BLOOD PRESSURE IMMEASURABLE [None]
  - BLOOD UREA INCREASED [None]
  - CARDIOACTIVE DRUG LEVEL BELOW THERAPEUTIC [None]
  - CARDIOGENIC SHOCK [None]
  - CARDIOMEGALY [None]
  - CONFUSIONAL STATE [None]
  - CYANOSIS [None]
  - DEPRESSED LEVEL OF CONSCIOUSNESS [None]
  - DIZZINESS [None]
  - DRUG TOXICITY [None]
  - ECHOCARDIOGRAM ABNORMAL [None]
  - ELECTROCARDIOGRAM QRS COMPLEX PROLONGED [None]
  - HEART RATE DECREASED [None]
  - LEFT VENTRICULAR DYSFUNCTION [None]
  - OXYGEN SATURATION IMMEASURABLE [None]
  - PERIPHERAL COLDNESS [None]
  - PULSE ABSENT [None]
  - PULSE PRESSURE DECREASED [None]
  - RENAL IMPAIRMENT [None]
  - VOMITING [None]
